FAERS Safety Report 19510248 (Version 1)
Quarter: 2021Q3

REPORT INFORMATION
  Report Type: Other
  Country: CN (occurrence: CN)
  Receive Date: 20210709
  Receipt Date: 20210709
  Transmission Date: 20211014
  Serious: Yes (Other)
  Sender: FDA-Public Use
  Company Number: CN-ROCHE-2860954

PATIENT

DRUGS (4)
  1. PACLITAXEL FOR INJECTION (ALBUMIN BOUND) [Suspect]
     Active Substance: PACLITAXEL
     Indication: PANCREATIC CARCINOMA
     Dosage: DAY1
     Route: 041
  2. BEVACIZUMAB. [Suspect]
     Active Substance: BEVACIZUMAB
     Indication: PANCREATIC CARCINOMA
     Dosage: DAY1
     Route: 065
  3. GEMCITABINE. [Suspect]
     Active Substance: GEMCITABINE
     Indication: PANCREATIC CARCINOMA
     Dosage: DAY 8
     Route: 041
  4. CAMRELIZUMAB [Suspect]
     Active Substance: CAMRELIZUMAB
     Indication: PANCREATIC CARCINOMA
     Route: 041

REACTIONS (13)
  - Anaemia [Unknown]
  - Off label use [Unknown]
  - Alopecia [Unknown]
  - Nausea [Unknown]
  - Immune-mediated hypothyroidism [Unknown]
  - Neurotoxicity [Unknown]
  - Reactive capillary endothelial proliferation [Unknown]
  - Asthenia [Unknown]
  - Rash [Unknown]
  - Vomiting [Unknown]
  - Immune-mediated hepatic disorder [Unknown]
  - Neutrophil count decreased [Unknown]
  - Immune-mediated renal disorder [Unknown]
